FAERS Safety Report 6110565-X (Version None)
Quarter: 2009Q1

REPORT INFORMATION
  Report Type: 
  Country: None (occurrence: None)
  Receive Date: 20090310
  Receipt Date: 20090303
  Transmission Date: 20090719
  Serious: Yes (Hospitalization)
  Sender: FDA-Public Use
  Company Number: US-ABBOTT-09P-163-0560138-00

PATIENT
  Sex: Male
  Weight: 86.26 kg

DRUGS (35)
  1. HUMIRA [Suspect]
     Indication: POLYCHONDRITIS
     Route: 058
  2. HUMIRA [Suspect]
     Route: 058
  3. PERCOCET [Concomitant]
     Indication: PAIN
     Route: 048
  4. MS CONTIN [Concomitant]
     Indication: PAIN
     Route: 048
  5. METHOTREXATE [Concomitant]
     Indication: POLYCHONDRITIS
     Route: 048
  6. PREDNISONE [Concomitant]
     Indication: POLYCHONDRITIS
     Dosage: DECREASING DOSE CURRENTLY 35 MG
     Route: 048
  7. LISINOPRIL [Concomitant]
     Indication: HYPERTENSION
     Route: 048
  8. TOPAMAX [Concomitant]
     Indication: MIGRAINE
     Route: 048
  9. CELLCEPT [Concomitant]
     Indication: POLYCHONDRITIS
     Route: 048
  10. TRAZODONE HCL [Concomitant]
     Indication: DEPRESSION
     Route: 048
  11. TRAZODONE HCL [Concomitant]
     Indication: INSOMNIA
  12. SUCRALFATE [Concomitant]
     Indication: ULCER
     Route: 048
  13. SUCRALFATE [Concomitant]
     Indication: GASTROOESOPHAGEAL REFLUX DISEASE
  14. EFFEXOR XR [Concomitant]
     Indication: DEPRESSION
     Route: 048
  15. EFFEXOR XR [Concomitant]
     Indication: ANXIETY
  16. REGLAN [Concomitant]
     Indication: ANTIEMETIC SUPPORTIVE CARE
     Route: 048
  17. PRILOSEC [Concomitant]
     Indication: ULCER
     Route: 048
  18. ZANTAC [Concomitant]
     Indication: GASTROOESOPHAGEAL REFLUX DISEASE
     Route: 048
  19. ZANTAC [Concomitant]
  20. ZANTAC [Concomitant]
     Indication: ULCER
  21. BACTRIM DS [Concomitant]
     Indication: BRONCHITIS CHRONIC
     Route: 048
  22. BACTRIM DS [Concomitant]
     Indication: UPPER RESPIRATORY TRACT INFECTION
  23. BACTRIM DS [Concomitant]
     Indication: PNEUMONIA
  24. FOLIC ACID [Concomitant]
     Indication: DRUG USE FOR UNKNOWN INDICATION
     Route: 048
  25. SINGULAIR [Concomitant]
     Indication: BRONCHOSPASM
     Route: 048
  26. COLACE [Concomitant]
     Indication: CONSTIPATION PROPHYLAXIS
     Route: 048
  27. SENOKOT [Concomitant]
     Indication: CONSTIPATION PROPHYLAXIS
     Route: 048
  28. XANAX [Concomitant]
     Indication: ANXIETY
     Route: 048
  29. PREDNISOLONE [Concomitant]
     Indication: POLYCHONDRITIS
     Dosage: LEFT EYE
     Route: 047
  30. PREDNISOLONE [Concomitant]
     Indication: INFLAMMATION
  31. OCULAR LUBRICANT [Concomitant]
     Indication: POLYCHONDRITIS
     Dosage: 0.5 %
     Route: 047
  32. ATROVENT [Concomitant]
     Indication: POLYCHONDRITIS
     Dosage: 0.02 % VIA NEBULIZER
     Route: 055
  33. PULMICORT [Concomitant]
     Indication: POLYCHONDRITIS
     Dosage: 0.5/2.5ML
     Route: 055
  34. ALBUTEROL [Concomitant]
     Indication: POLYCHONDRITIS
     Dosage: 0.083 %
     Route: 055
  35. FOSAMAX [Concomitant]
     Indication: OSTEOPOROSIS
     Route: 048
     Dates: start: 20090216

REACTIONS (4)
  - OSTEOPOROSIS [None]
  - POLYCHONDRITIS [None]
  - TRACHEITIS [None]
  - WEIGHT INCREASED [None]
